FAERS Safety Report 7017979-4 (Version None)
Quarter: 2010Q3

REPORT INFORMATION
  Report Type: 
  Country: None (occurrence: None)
  Receive Date: 20100928
  Receipt Date: 20100916
  Transmission Date: 20110219
  Serious: Yes (Life-Threatening)
  Sender: FDA-Public Use
  Company Number: FR-SANOFI-AVENTIS-2010SA055492

PATIENT
  Age: 55 Year
  Sex: Male

DRUGS (11)
  1. FLAGYL [Suspect]
     Indication: SEPSIS
     Route: 065
     Dates: start: 20100412, end: 20100429
  2. FLAGYL [Suspect]
     Indication: ESCHERICHIA SEPSIS
     Route: 065
     Dates: start: 20100412, end: 20100429
  3. CLAFORAN [Suspect]
     Indication: SEPSIS
     Route: 065
     Dates: start: 20100412, end: 20100414
  4. CLAFORAN [Suspect]
     Indication: ESCHERICHIA SEPSIS
     Route: 065
     Dates: start: 20100412, end: 20100414
  5. PYOSTACINE [Suspect]
     Indication: ESCHAR
     Dates: start: 20100401, end: 20100412
  6. PREVISCAN [Suspect]
     Indication: DEEP VEIN THROMBOSIS
     Route: 065
     Dates: start: 20020101, end: 20100412
  7. AMIKIN [Suspect]
     Indication: SEPSIS
     Route: 042
     Dates: start: 20100412, end: 20100414
  8. AMIKIN [Suspect]
     Indication: ESCHERICHIA SEPSIS
     Route: 042
     Dates: start: 20100412, end: 20100414
  9. NOROXIN [Suspect]
     Indication: ESCHAR
     Route: 048
     Dates: start: 20100401, end: 20100412
  10. DIAMICRON [Concomitant]
     Route: 048
  11. DITROPAN [Concomitant]
     Route: 048

REACTIONS (1)
  - SUBDURAL HAEMATOMA [None]
